FAERS Safety Report 9361421 (Version 3)
Quarter: 2013Q3

REPORT INFORMATION
  Report Type: Spontaneous
  Country: US (occurrence: US)
  Receive Date: 20130621
  Receipt Date: 20130718
  Transmission Date: 20140515
  Serious: Yes (Other)
  Sender: FDA-Public Use
  Company Number: US-TEVA-413813USA

PATIENT
  Age: 60 Year
  Sex: Female

DRUGS (1)
  1. COPAXONE [Suspect]
     Indication: MULTIPLE SCLEROSIS

REACTIONS (7)
  - Hypersensitivity [Recovering/Resolving]
  - Pharyngeal oedema [Recovered/Resolved]
  - Swollen tongue [Unknown]
  - Dysphonia [Unknown]
  - Urticaria [Recovered/Resolved]
  - Tremor [Unknown]
  - Injection site irritation [Unknown]
